FAERS Safety Report 9340613 (Version 1)
Quarter: 2013Q2

REPORT INFORMATION
  Report Type: Spontaneous
  Country: NO (occurrence: NO)
  Receive Date: 20130610
  Receipt Date: 20130610
  Transmission Date: 20140414
  Serious: Yes (Death)
  Sender: FDA-Public Use
  Company Number: NO-JNJFOC-20130603216

PATIENT
  Age: 70 Year
  Sex: Female

DRUGS (7)
  1. XARELTO [Suspect]
     Indication: CEREBROVASCULAR ACCIDENT PROPHYLAXIS
     Route: 048
     Dates: start: 20130323
  2. XARELTO [Suspect]
     Indication: ATRIAL FIBRILLATION
     Route: 048
     Dates: start: 20130323
  3. NOZINAN [Concomitant]
     Indication: INSOMNIA
     Route: 048
     Dates: start: 20101209
  4. CALCIGRAN FORTE [Concomitant]
     Dosage: 500 MG/400 IE X 2
     Route: 048
     Dates: start: 20110604
  5. GLUCOPHAGE [Concomitant]
     Indication: DIABETES MELLITUS
     Route: 048
     Dates: start: 20090716
  6. VERAPAMIL HYDROCHLORIDE [Concomitant]
     Indication: ATRIAL FIBRILLATION
     Route: 048
     Dates: start: 20130214
  7. BURINEX [Concomitant]
     Indication: CARDIAC FAILURE
     Route: 048
     Dates: start: 20130510

REACTIONS (2)
  - Death [Fatal]
  - Cardiac arrest [Fatal]
